FAERS Safety Report 17231318 (Version 3)
Quarter: 2020Q1

REPORT INFORMATION
  Report Type: Spontaneous
  Country: US (occurrence: US)
  Receive Date: 20200103
  Receipt Date: 20200108
  Transmission Date: 20200409
  Serious: No
  Sender: FDA-Public Use
  Company Number: US-PFIZER INC-2019563362

PATIENT
  Age: 50 Year
  Sex: Female

DRUGS (1)
  1. KERYDIN [Suspect]
     Active Substance: TAVABOROLE
     Dosage: UNK (5%, 10 ML BOTTLE, DIRECTIONS ARE APPLY TO AFFECTED NAIL DAILY UP TO 11 MONTHS)

REACTIONS (1)
  - Nail discolouration [Unknown]
